FAERS Safety Report 9114403 (Version 1)
Quarter: 2013Q1

REPORT INFORMATION
  Report Type: Spontaneous
  Country: US (occurrence: None)
  Receive Date: 20130220
  Receipt Date: 20130220
  Transmission Date: 20140127
  Serious: Yes (Other)
  Sender: FDA-Public Use
  Company Number: None

PATIENT
  Age: 65 Year
  Sex: Male
  Weight: 75.3 kg

DRUGS (1)
  1. ATORVASTATIN [Suspect]
     Indication: BLOOD CHOLESTEROL INCREASED
     Dosage: 1 TAB   DAILY  PO?01/23/2013  --  01/27/2013
     Route: 048
     Dates: start: 20130123, end: 20130127

REACTIONS (3)
  - Heart rate increased [None]
  - Sputum increased [None]
  - Malaise [None]
